FAERS Safety Report 5939589-X (Version None)
Quarter: 2008Q4

REPORT INFORMATION
  Report Type: 
  Country: None (occurrence: None)
  Receive Date: 20081030
  Receipt Date: 20081016
  Transmission Date: 20090506
  Serious: Yes (Death, Hospitalization)
  Sender: FDA-Public Use
  Company Number: A-NJ2008-22029

PATIENT
  Age: 73 Year
  Sex: Female

DRUGS (4)
  1. TRACLEER [Suspect]
     Indication: PULMONARY HYPERTENSION
     Dosage: ORAL
     Route: 048
     Dates: start: 20070803
  2. VENTAVIS [Concomitant]
  3. LOVENOX [Concomitant]
  4. WARFARIN SODIUM [Concomitant]

REACTIONS (13)
  - BACTERIURIA [None]
  - BLOOD PH DECREASED [None]
  - CONFUSIONAL STATE [None]
  - CONVULSION [None]
  - HYPOTENSION [None]
  - HYPOXIA [None]
  - OEDEMA PERIPHERAL [None]
  - POST PROCEDURAL COMPLICATION [None]
  - PULMONARY EMBOLISM [None]
  - PYREXIA [None]
  - SUBDURAL HAEMATOMA [None]
  - TACHYPNOEA [None]
  - URINE OUTPUT DECREASED [None]
